FAERS Safety Report 17401727 (Version 4)
Quarter: 2021Q2

REPORT INFORMATION
  Report Type: Report from Study
  Country: US (occurrence: US)
  Receive Date: 20200211
  Receipt Date: 20210513
  Transmission Date: 20210716
  Serious: Yes (Death, Hospitalization, Other)
  Sender: FDA-Public Use
  Company Number: US-ASTELLAS-2020US004394

PATIENT
  Age: 70 Year
  Sex: Male

DRUGS (1)
  1. ENZALUTAMIDE [Suspect]
     Active Substance: ENZALUTAMIDE
     Indication: HORMONE-REFRACTORY PROSTATE CANCER
     Route: 048
     Dates: start: 20200116

REACTIONS (6)
  - Abdominal pain upper [Unknown]
  - Drug ineffective [Unknown]
  - Pain [Unknown]
  - Death [Fatal]
  - Dyspepsia [Unknown]
  - Burning sensation [Unknown]

NARRATIVE: CASE EVENT DATE: 20210324
